FAERS Safety Report 7089092-1 (Version None)
Quarter: 2010Q4

REPORT INFORMATION
  Report Type: 
  Country: None (occurrence: None)
  Receive Date: 20101108
  Receipt Date: 20101101
  Transmission Date: 20110411
  Serious: Yes (Other)
  Sender: FDA-Public Use
  Company Number: B0683315A

PATIENT
  Age: 40 Year
  Sex: Female
  Weight: 45 kg

DRUGS (1)
  1. PAROXETINE HCL [Suspect]
     Indication: DEPRESSION
     Dosage: 20MG PER DAY
     Route: 048
     Dates: start: 20040101

REACTIONS (2)
  - ALANINE AMINOTRANSFERASE INCREASED [None]
  - BREAST HYPERPLASIA [None]
